FAERS Safety Report 21404116 (Version 1)
Quarter: 2022Q4

REPORT INFORMATION
  Report Type: Report from Study
  Country: US (occurrence: US)
  Receive Date: 20221003
  Receipt Date: 20221003
  Transmission Date: 20230112
  Serious: Yes (Other)
  Sender: FDA-Public Use
  Company Number: US-ALNYLAM PHARMACEUTICALS, INC.-ALN-2022-003345

PATIENT

DRUGS (1)
  1. GIVLAARI [Suspect]
     Active Substance: GIVOSIRAN SODIUM
     Indication: Product used for unknown indication
     Dosage: 227.25 MILLIGRAM, MONTHLY
     Route: 058
     Dates: start: 20220428

REACTIONS (2)
  - Adverse food reaction [Recovered/Resolved]
  - Inappropriate schedule of product administration [Unknown]
